FAERS Safety Report 9470631 (Version 2)
Quarter: 2013Q3

REPORT INFORMATION
  Report Type: Spontaneous
  Country: AU (occurrence: AU)
  Receive Date: 20130822
  Receipt Date: 20130827
  Transmission Date: 20140515
  Serious: Yes (Other)
  Sender: FDA-Public Use
  Company Number: AU-PFIZER INC-2013242745

PATIENT
  Age: 53 Year
  Sex: Female

DRUGS (4)
  1. VENLAFAXINE HCL [Suspect]
     Dosage: 75 MG,1X/DAY
     Dates: start: 20130221, end: 20130226
  2. TRAMADOL SANDOZ XR [Interacting]
     Dosage: 150 MG, UNK
     Dates: start: 20110701, end: 20130226
  3. NUROFEN PLUS [Concomitant]
     Indication: PAIN
  4. ACETAMINOPHEN [Concomitant]
     Indication: PAIN
     Dosage: UNK

REACTIONS (2)
  - Drug interaction [Unknown]
  - Grand mal convulsion [Unknown]
